FAERS Safety Report 12259382 (Version 1)
Quarter: 2016Q2

REPORT INFORMATION
  Report Type: Spontaneous
  Country: DE (occurrence: DE)
  Receive Date: 20160412
  Receipt Date: 20160412
  Transmission Date: 20160815
  Serious: Yes (Other)
  Sender: FDA-Public Use
  Company Number: DE-TEVA-648685GER

PATIENT
  Sex: Female

DRUGS (3)
  1. IBU [Suspect]
     Active Substance: IBUPROFEN
     Indication: COCCYDYNIA
     Dosage: 1800 MILLIGRAM DAILY;
     Route: 048
     Dates: start: 20160228, end: 20160301
  2. IBU [Suspect]
     Active Substance: IBUPROFEN
     Route: 048
     Dates: start: 2016
  3. PANTOPRAZOL [Suspect]
     Active Substance: PANTOPRAZOLE SODIUM
     Route: 048

REACTIONS (5)
  - Contusion [Unknown]
  - Omphalitis [Unknown]
  - Contusion [Unknown]
  - Gingivitis [Recovered/Resolved]
  - Lymphadenopathy [Unknown]

NARRATIVE: CASE EVENT DATE: 201603
